FAERS Safety Report 9827687 (Version 3)
Quarter: 2014Q1

REPORT INFORMATION
  Report Type: Spontaneous
  Country: ES (occurrence: ES)
  Receive Date: 20140117
  Receipt Date: 20140130
  Transmission Date: 20141002
  Serious: Yes (Death)
  Sender: FDA-Public Use
  Company Number: ES-OPTIMER-20130466

PATIENT
  Sex: Male

DRUGS (3)
  1. DIFICLIR [Suspect]
     Indication: CLOSTRIDIAL INFECTION
     Dosage: UNK
     Route: 050
     Dates: start: 20131122
  2. METRONIDAZOLE [Concomitant]
     Dosage: UNK
  3. VANCOMYCIN [Concomitant]
     Dosage: UNK

REACTIONS (2)
  - General physical health deterioration [Fatal]
  - Off label use [Not Recovered/Not Resolved]
